FAERS Safety Report 6391579-1 (Version None)
Quarter: 2009Q4

REPORT INFORMATION
  Report Type: 
  Country: None (occurrence: None)
  Receive Date: 20091003
  Receipt Date: 20090918
  Transmission Date: 20100525
  Serious: Yes (Hospitalization)
  Sender: FDA-Public Use
  Company Number: DSU-2009-02004

PATIENT
  Age: 79 Year
  Sex: Female
  Weight: 47.6277 kg

DRUGS (3)
  1. AZOR [Suspect]
     Indication: HYPERTENSION
     Dosage: 10/40MG (QD),PER ORAL
  2. CLONIDINE [Concomitant]
  3. CARDURA [Concomitant]

REACTIONS (5)
  - COLITIS [None]
  - OEDEMA PERIPHERAL [None]
  - PURULENCE [None]
  - RASH [None]
  - WEIGHT DECREASED [None]
